FAERS Safety Report 4759795-X (Version None)
Quarter: 2005Q3

REPORT INFORMATION
  Report Type: 
  Country: None (occurrence: None)
  Receive Date: 20050831
  Receipt Date: 20050831
  Transmission Date: 20060218
  Serious: Yes (Other)
  Sender: FDA-Public Use
  Company Number: None

PATIENT
  Age: 32 Year
  Sex: Female
  Weight: 74.3899 kg

DRUGS (2)
  1. SEROQUEL [Suspect]
     Indication: PAIN
     Dosage: 200 MG QHS + 25 MG PRN
     Dates: start: 20050712
  2. HYDROCODONE [Suspect]
     Dosage: 7.5/500 Q4-6 PRN
     Dates: start: 20050712

REACTIONS (3)
  - ABNORMAL BEHAVIOUR [None]
  - FEELING ABNORMAL [None]
  - RESTLESSNESS [None]
